FAERS Safety Report 26048727 (Version 1)
Quarter: 2025Q4

REPORT INFORMATION
  Report Type: Spontaneous
  Country: EU (occurrence: EU)
  Receive Date: 20251115
  Receipt Date: 20251115
  Transmission Date: 20260117
  Serious: Yes (Hospitalization)
  Sender: TEVA
  Company Number: None

PATIENT
  Age: 63 Year
  Sex: Male

DRUGS (3)
  1. ALPRAZOLAM [Suspect]
     Active Substance: ALPRAZOLAM
     Indication: Prophylaxis against alcoholic withdrawal syndrome
     Dosage: 0.5 X 3/DAY
     Route: 048
     Dates: start: 202510
  2. DISULFIRAM [Suspect]
     Active Substance: DISULFIRAM
     Indication: Prophylaxis against alcoholic withdrawal syndrome
     Route: 048
     Dates: start: 2024
  3. DULOXETINE [Suspect]
     Active Substance: DULOXETINE
     Indication: Prophylaxis against alcoholic withdrawal syndrome
     Dosage: DULOXETINE HYDROCHLORIDE
     Route: 048
     Dates: start: 2024

REACTIONS (1)
  - Syncope [Not Recovered/Not Resolved]
